FAERS Safety Report 7719995-3 (Version None)
Quarter: 2011Q3

REPORT INFORMATION
  Report Type: 
  Country: None (occurrence: None)
  Receive Date: 20110831
  Receipt Date: 20110823
  Transmission Date: 20111222
  Serious: No
  Sender: FDA-Public Use
  Company Number: US-BIOGENIDEC-2011BI032733

PATIENT
  Age: 25 Year
  Sex: Female

DRUGS (3)
  1. TYSABRI [Suspect]
     Indication: MULTIPLE SCLEROSIS
     Route: 042
     Dates: start: 20100519
  2. TYSABRI [Suspect]
     Route: 042
     Dates: start: 20080226, end: 20080325
  3. TYSABRI [Suspect]
     Route: 042
     Dates: start: 20081126, end: 20090320

REACTIONS (2)
  - PAIN [None]
  - CHILLS [None]
